FAERS Safety Report 10247452 (Version 8)
Quarter: 2015Q1

REPORT INFORMATION
  Report Type: Spontaneous
  Country: JP (occurrence: JP)
  Receive Date: 20140619
  Receipt Date: 20150114
  Transmission Date: 20150720
  Serious: Yes (Hospitalization, Other)
  Sender: FDA-Public Use
  Company Number: JP-BRISTOL-MYERS SQUIBB COMPANY-21034863

PATIENT
  Age: 66 Year
  Sex: Female
  Weight: 43 kg

DRUGS (14)
  1. TAKEPRON [Suspect]
     Active Substance: LANSOPRAZOLE
     Indication: ADVERSE EVENT
     Dosage: 30 MG, QD
     Route: 048
     Dates: start: 201211
  2. LENDORMIN [Suspect]
     Active Substance: BROTIZOLAM
     Indication: ADVERSE EVENT
     Dosage: .25 MG, QD
     Route: 048
  3. LYRICA [Suspect]
     Active Substance: PREGABALIN
     Indication: ADVERSE EVENT
     Dosage: 75 MG, BID
     Route: 065
     Dates: start: 201403
  4. ERBITUX [Suspect]
     Active Substance: CETUXIMAB
     Dosage: 14JUL14-28JUL,04AUG-18AUG,25AUG-8SEP  21AP:400MG/M2  28AP-7MY:12MY-16JN:23JUN-7JL:16SP-6OC14
     Route: 041
     Dates: start: 20140421
  5. TAXOL [Suspect]
     Active Substance: PACLITAXEL
     Dosage: 14JUL14-22JUL14,04AUG14-11AUG14,25AUG14-01SEP14
     Route: 041
     Dates: start: 20140421
  6. PARAPLATIN [Suspect]
     Active Substance: CARBOPLATIN
     Indication: SQUAMOUS CELL CARCINOMA OF HEAD AND NECK
     Dosage: AUC2.521APR14-28APR,12MAY-12MAY,03JUN-03JUN,23JUN-30JUN
     Route: 041
     Dates: start: 20140421
  7. MORPHINE SULFATE. [Suspect]
     Active Substance: MORPHINE SULFATE
     Indication: ADVERSE EVENT
     Dosage: UNK UNK, PRN
     Route: 048
     Dates: start: 20140407
  8. MILMAG [Suspect]
     Active Substance: MAGNESIUM HYDROXIDE
     Indication: ADVERSE EVENT
     Dosage: 7 ML, TID
     Route: 048
     Dates: start: 201304
  9. CALONAL [Suspect]
     Active Substance: ACETAMINOPHEN
     Indication: ADVERSE EVENT
     Dosage: 400 MG/M2, QID
     Route: 048
     Dates: start: 201311
  10. PARAPLATIN [Suspect]
     Active Substance: CARBOPLATIN
     Dosage: 14JUL14-22JUL14,04AUG14-11AUG14,25AUG14-01SEP14
     Route: 041
     Dates: start: 20140421
  11. OPSO [Suspect]
     Active Substance: MORPHINE HYDROCHLORIDE
     Indication: ADVERSE EVENT
     Dosage: UNK UNK, PRN
     Route: 048
     Dates: start: 201304
  12. ERBITUX [Suspect]
     Active Substance: CETUXIMAB
     Indication: SQUAMOUS CELL CARCINOMA OF HEAD AND NECK
     Dosage: 250 MG/M2, QWK
     Route: 041
     Dates: start: 20140421
  13. TAXOL [Suspect]
     Active Substance: PACLITAXEL
     Indication: SQUAMOUS CELL CARCINOMA OF HEAD AND NECK
     Dosage: 100 MG/M2;80MG/M2;21APR14-28APR14,12MAY-12MAY,03JUN-03JUN,23JUN-30JUN
     Route: 041
     Dates: start: 20140421
  14. RACOL [Suspect]
     Active Substance: AMINO ACIDS\DEXTROSE\ELECTROLYTES NOS
     Indication: ADVERSE EVENT
     Dosage: 200 ML, QID
     Route: 048
     Dates: start: 201311

REACTIONS (24)
  - Alopecia [Unknown]
  - Neutrophil count decreased [Unknown]
  - Hypoalbuminaemia [Unknown]
  - Tracheo-oesophageal fistula [Not Recovered/Not Resolved]
  - Hyponatraemia [Unknown]
  - White blood cell count decreased [Unknown]
  - Skin infection [Unknown]
  - Constipation [Unknown]
  - Hypersensitivity [Unknown]
  - Pneumonia [Recovered/Resolved]
  - Palmar-plantar erythrodysaesthesia syndrome [Unknown]
  - Hearing impaired [Unknown]
  - Haemoglobin decreased [Unknown]
  - Malaise [Unknown]
  - Diarrhoea [Unknown]
  - Aspartate aminotransferase increased [Unknown]
  - Proteinuria [Unknown]
  - Dry skin [Unknown]
  - Infusion related reaction [Not Recovered/Not Resolved]
  - Dysphagia [Unknown]
  - Blood bilirubin increased [Unknown]
  - Dysgeusia [Unknown]
  - Peripheral sensory neuropathy [Unknown]
  - Alanine aminotransferase increased [Unknown]

NARRATIVE: CASE EVENT DATE: 20140421
